FAERS Safety Report 4648623-9 (Version None)
Quarter: 2005Q2

REPORT INFORMATION
  Report Type: 
  Country: None (occurrence: None)
  Receive Date: 20050427
  Receipt Date: 20050414
  Transmission Date: 20051028
  Serious: Yes (Other)
  Sender: FDA-Public Use
  Company Number: 2005057556

PATIENT
  Sex: Female

DRUGS (2)
  1. BEXTRA [Suspect]
     Indication: INJURY
     Dosage: 40 MG (40 MG, 1 IN 1 D), ORAL
     Route: 048
     Dates: start: 20041115, end: 20041119
  2. NALDECOL (CARBINOXAMIN MALEATE, PHENYLEPHRINE HYDROCHLORIDE, PHENYLTOL [Concomitant]

REACTIONS (4)
  - DRUG INEFFECTIVE [None]
  - GENITAL PRURITUS FEMALE [None]
  - GENITAL RASH [None]
  - HEADACHE [None]
